FAERS Safety Report 6204925-6 (Version None)
Quarter: 2009Q2

REPORT INFORMATION
  Report Type: 
  Country: None (occurrence: None)
  Receive Date: 20090526
  Receipt Date: 20090513
  Transmission Date: 20091009
  Serious: Yes (Hospitalization)
  Sender: FDA-Public Use
  Company Number: 2009AL003438

PATIENT
  Age: 39 Year
  Sex: Female

DRUGS (1)
  1. LIDOCAINE HYDROCHLORIDE 2% [Suspect]
     Indication: COMPLEX REGIONAL PAIN SYNDROME
     Dosage: TOP
     Route: 061
     Dates: start: 20090309, end: 20090410

REACTIONS (2)
  - PAIN [None]
  - RASH MACULAR [None]
